FAERS Safety Report 10871530 (Version 1)
Quarter: 2015Q1

REPORT INFORMATION
  Report Type: Spontaneous
  Country: JP (occurrence: JP)
  Receive Date: 20150226
  Receipt Date: 20150226
  Transmission Date: 20150721
  Serious: Yes (Other)
  Sender: FDA-Public Use
  Company Number: JP-GLAXOSMITHKLINE-JP2015JPN023672

PATIENT
  Age: 61 Year
  Sex: Female

DRUGS (4)
  1. XELODA [Concomitant]
     Active Substance: CAPECITABINE
     Dosage: UNK
     Route: 048
  2. TYKERB [Suspect]
     Active Substance: LAPATINIB DITOSYLATE
     Indication: BREAST CANCER
     Dosage: 1250 MG, QD
     Route: 048
     Dates: start: 20140221, end: 20140913
  3. PACLITAXEL. [Concomitant]
     Active Substance: PACLITAXEL
     Dosage: UNK
  4. HERCEPTIN [Concomitant]
     Active Substance: TRASTUZUMAB
     Dosage: UNK

REACTIONS (1)
  - Large intestinal ulcer [Recovered/Resolved]

NARRATIVE: CASE EVENT DATE: 20140913
